FAERS Safety Report 9580645 (Version 1)
Quarter: 2013Q3

REPORT INFORMATION
  Report Type: Spontaneous
  Country: US (occurrence: None)
  Receive Date: 20130916
  Receipt Date: 20130916
  Transmission Date: 20140515
  Serious: Yes (Other)
  Sender: FDA-Public Use
  Company Number: JPI-P-025799

PATIENT
  Age: 42 Year
  Sex: Male

DRUGS (7)
  1. XYREM (500 MILLIGRAM/MILLILITERS, SOLUTION) (SODIUM OXYBATE) [Suspect]
     Indication: NARCOLEPSY
     Route: 048
     Dates: start: 20120516
  2. XYREM (500 MILLIGRAM/MILLILITERS, SOLUTION) (SODIUM OXYBATE) [Suspect]
     Indication: SOMNOLENCE
     Route: 048
     Dates: start: 20120516
  3. SULFAMETHOXAZOLE W/TRIMETHOPRIM [Concomitant]
  4. SOLIFENACIN SUCCINATE [Concomitant]
  5. TOPIRAMATE [Concomitant]
  6. ARMODAFINIL [Concomitant]
  7. ELETRIPTAN HYDROBROMIDE [Concomitant]

REACTIONS (5)
  - Concussion [None]
  - Nausea [None]
  - Vomiting [None]
  - Headache [None]
  - Dehydration [None]
